FAERS Safety Report 9153091 (Version 1)
Quarter: 2013Q1

REPORT INFORMATION
  Report Type: Spontaneous
  Country: US (occurrence: None)
  Receive Date: 20130304
  Receipt Date: 20130304
  Transmission Date: 20140127
  Serious: Yes (Death)
  Sender: FDA-Public Use
  Company Number: None

PATIENT
  Age: 58 Year
  Sex: Male
  Weight: 91 kg

DRUGS (1)
  1. METHYLENE BLUE [Suspect]
     Indication: LABORATORY TEST
     Dosage: 1% - 10 MG/ML
     Route: 011
     Dates: start: 20121212, end: 20121213

REACTIONS (6)
  - Electrocardiogram ST segment depression [None]
  - Electrocardiogram ST segment elevation [None]
  - Hypotension [None]
  - Ventricular tachycardia [None]
  - Ventricular fibrillation [None]
  - Cardiac arrest [None]
